FAERS Safety Report 11393317 (Version 2)
Quarter: 2015Q3

REPORT INFORMATION
  Report Type: Spontaneous
  Country: BR (occurrence: BR)
  Receive Date: 20150818
  Receipt Date: 20150911
  Transmission Date: 20151125
  Serious: Yes (Other)
  Sender: FDA-Public Use
  Company Number: BR-ABBVIE-15P-020-1447622-00

PATIENT
  Age: 78 Year
  Sex: Male
  Weight: 60 kg

DRUGS (16)
  1. SYNTHROID [Suspect]
     Active Substance: LEVOTHYROXINE SODIUM
     Dosage: FORM STRENGTH: 50 AND 75 MICROGRAM. DOSE REGIMEN: 50MCG AND 75MCG ON ALTERNATE DAYS
     Route: 048
  2. ROSUVASTATIN [Suspect]
     Active Substance: ROSUVASTATIN
     Indication: CARDIAC DISORDER
     Dosage: THE TREATMENT IS INTERMITTENT.
     Route: 065
  3. ROSUVASTATIN [Suspect]
     Active Substance: ROSUVASTATIN
     Indication: ARTERIAL OCCLUSIVE DISEASE
  4. AMIODARONE [Suspect]
     Active Substance: AMIODARONE
     Indication: TACHYCARDIA
     Route: 065
     Dates: end: 201405
  5. ACETYLSALICYLIC ACID [Concomitant]
     Active Substance: ASPIRIN
     Indication: CAROTID ARTERIOSCLEROSIS
     Dosage: DAILY DOSE: 1 TABLET; UNIT DOSE TAKEN AFTER LUNCH; THE TREATMENT WAS INTERMITTENT.
     Route: 048
     Dates: start: 1998, end: 201505
  6. SELOZOK [Suspect]
     Active Substance: METOPROLOL SUCCINATE
     Route: 065
  7. SELOZOK [Suspect]
     Active Substance: METOPROLOL SUCCINATE
     Route: 065
  8. SIMVASTATIN. [Concomitant]
     Active Substance: SIMVASTATIN
     Indication: CARDIAC DISORDER
     Route: 048
  9. SUSTRATE [Concomitant]
     Active Substance: PROPATYL NITRATE
     Indication: CEREBROVASCULAR ACCIDENT PROPHYLAXIS
     Route: 048
     Dates: start: 2000, end: 20090704
  10. OMEPRAZOLE. [Concomitant]
     Active Substance: OMEPRAZOLE
     Indication: GASTRITIS
     Dates: start: 1998
  11. SYNTHROID [Suspect]
     Active Substance: LEVOTHYROXINE SODIUM
     Indication: HYPOTHYROIDISM
     Dosage: DAILY DOSE: 25 MICROGRAM; IN FASTING (IN THE MORNING)
     Route: 048
     Dates: start: 2003, end: 2005
  12. ACETYLSALICYLIC ACID [Concomitant]
     Active Substance: ASPIRIN
     Indication: ANTICOAGULANT THERAPY
  13. CLOPIDOGREL [Suspect]
     Active Substance: CLOPIDOGREL BISULFATE
     Indication: ANTICOAGULANT THERAPY
     Dosage: DAILY DOSE: 75 MILLIGRAM; IN THE MORNING
     Route: 048
     Dates: start: 2007
  14. CLOPIDOGREL [Suspect]
     Active Substance: CLOPIDOGREL BISULFATE
     Indication: ARTERIAL OCCLUSIVE DISEASE
  15. SELOZOK [Suspect]
     Active Substance: METOPROLOL SUCCINATE
     Indication: TACHYCARDIA
     Route: 065
     Dates: start: 201404
  16. SYNTHROID [Suspect]
     Active Substance: LEVOTHYROXINE SODIUM
     Route: 048
     Dates: start: 2005

REACTIONS (19)
  - Carotid artery occlusion [Unknown]
  - Diarrhoea [Recovering/Resolving]
  - Dyspepsia [Not Recovered/Not Resolved]
  - Pain [Recovered/Resolved]
  - Nausea [Not Recovered/Not Resolved]
  - Constipation [Recovering/Resolving]
  - Gastrointestinal motility disorder [Recovering/Resolving]
  - Blood thyroid stimulating hormone decreased [Recovered/Resolved]
  - Abdominal pain [Recovering/Resolving]
  - Abdominal pain upper [Recovering/Resolving]
  - Decreased appetite [Not Recovered/Not Resolved]
  - Blood thyroid stimulating hormone decreased [Recovered/Resolved]
  - Abdominal pain [Recovering/Resolving]
  - Asthenia [Unknown]
  - Coronary artery occlusion [Unknown]
  - Tachycardia [Recovered/Resolved]
  - Asthenia [Recovered/Resolved]
  - Thyroxine decreased [Recovered/Resolved]
  - Tri-iodothyronine decreased [Recovered/Resolved]

NARRATIVE: CASE EVENT DATE: 2005
